FAERS Safety Report 14008605 (Version 1)
Quarter: 2017Q3

REPORT INFORMATION
  Report Type: Spontaneous
  Country: US (occurrence: US)
  Receive Date: 20170925
  Receipt Date: 20170925
  Transmission Date: 20171128
  Serious: Yes (Death, Hospitalization, Other)
  Sender: FDA-Public Use
  Company Number: US-ELI_LILLY_AND_COMPANY-US201709004355

PATIENT
  Sex: Female

DRUGS (1)
  1. HUMULIN R [Suspect]
     Active Substance: INSULIN HUMAN
     Indication: DIABETES MELLITUS
     Dosage: UNK UNK, TID
     Route: 065
     Dates: start: 1990

REACTIONS (9)
  - Pneumonia [Fatal]
  - Cerebrovascular accident [Unknown]
  - Myocardial infarction [Unknown]
  - Myocardial infarction [Fatal]
  - Blood pressure increased [Unknown]
  - Pulmonary oedema [Fatal]
  - Cerebrovascular accident [Unknown]
  - Urinary tract infection [Unknown]
  - Wrong technique in product usage process [Unknown]

NARRATIVE: CASE EVENT DATE: 1990
